FAERS Safety Report 4361136-7 (Version None)
Quarter: 2004Q2

REPORT INFORMATION
  Report Type: 
  Country: None (occurrence: None)
  Receive Date: 20040511
  Receipt Date: 20040303
  Transmission Date: 20050107
  Serious: Yes (Death)
  Sender: FDA-Public Use
  Company Number: USA040360918

PATIENT
  Sex: Female
  Weight: 45 kg

DRUGS (2)
  1. ZYPREXA [Suspect]
     Indication: BIPOLAR DISORDER
     Dosage: 10 MG/EVERY DAY
  2. PROZAC [Suspect]
     Dosage: 40 MG

REACTIONS (1)
  - SUDDEN DEATH [None]
